FAERS Safety Report 5011899-2 (Version None)
Quarter: 2006Q2

REPORT INFORMATION
  Report Type: 
  Country: None (occurrence: None)
  Receive Date: 20060524
  Receipt Date: 20060524
  Transmission Date: 20061013
  Serious: Yes (Death, Hospitalization)
  Sender: FDA-Public Use
  Company Number: None

PATIENT
  Age: 87 Year
  Sex: Female

DRUGS (1)
  1. ALLOPURINOL [Suspect]
     Dosage: PO
     Route: 048
     Dates: start: 20050601, end: 20050628

REACTIONS (8)
  - BLOOD GLUCOSE INCREASED [None]
  - LUNG DISORDER [None]
  - NAUSEA [None]
  - RESPIRATORY FAILURE [None]
  - STEVENS-JOHNSON SYNDROME [None]
  - TOXIC EPIDERMAL NECROLYSIS [None]
  - VAGINAL DISCHARGE [None]
  - VOMITING [None]
